FAERS Safety Report 12782947 (Version 1)
Quarter: 2016Q3

REPORT INFORMATION
  Report Type: Spontaneous
  Country: US (occurrence: US)
  Receive Date: 20160927
  Receipt Date: 20160927
  Transmission Date: 20161109
  Serious: No
  Sender: FDA-Public Use
  Company Number: US-PFIZER INC-2016445006

PATIENT
  Age: 69 Year

DRUGS (6)
  1. PREDNISONE. [Suspect]
     Active Substance: PREDNISONE
  2. NORCO [Suspect]
     Active Substance: ACETAMINOPHEN\HYDROCODONE BITARTRATE
  3. MACRODANTIN [Suspect]
     Active Substance: NITROFURANTOIN
  4. SULFASALAZINE. [Suspect]
     Active Substance: SULFASALAZINE
  5. CODEINE [Suspect]
     Active Substance: CODEINE
  6. GEMFIBROZIL. [Suspect]
     Active Substance: GEMFIBROZIL

REACTIONS (1)
  - Drug hypersensitivity [Unknown]
